FAERS Safety Report 7364181-2 (Version None)
Quarter: 2011Q1

REPORT INFORMATION
  Report Type: 
  Country: None (occurrence: None)
  Receive Date: 20110321
  Receipt Date: 20110311
  Transmission Date: 20110831
  Serious: Yes (Other)
  Sender: FDA-Public Use
  Company Number: US-PFIZER INC-2007036976

PATIENT
  Sex: Female

DRUGS (2)
  1. NEURONTIN [Suspect]
     Indication: BACK PAIN
     Dosage: UNK
     Dates: start: 19990101
  2. NEURONTIN [Suspect]
     Indication: PAIN IN EXTREMITY

REACTIONS (5)
  - SUICIDAL IDEATION [None]
  - THINKING ABNORMAL [None]
  - DRUG INEFFECTIVE FOR UNAPPROVED INDICATION [None]
  - CEREBROVASCULAR ACCIDENT [None]
  - ANXIETY [None]
